FAERS Safety Report 18482012 (Version 2)
Quarter: 2020Q4

REPORT INFORMATION
  Report Type: Report from Study
  Country: US (occurrence: US)
  Receive Date: 20201109
  Receipt Date: 20201208
  Transmission Date: 20210114
  Serious: Yes (Death, Other)
  Sender: FDA-Public Use
  Company Number: US-OTSUKA-2020_027359

PATIENT
  Sex: Male

DRUGS (1)
  1. ASTX727 [Suspect]
     Active Substance: CEDAZURIDINE\DECITABINE
     Indication: MYELODYSPLASTIC SYNDROME
     Dosage: 135 MG (35 MG DECITABINE AND 100 MG CEDAZURIDINE) ONCE DAILY ON DAYS 1-5 DAYS OF EACH 28-DAY CYCLE
     Route: 065
     Dates: start: 20201015, end: 20201201

REACTIONS (2)
  - Death [Fatal]
  - Transfusion [Unknown]
